FAERS Safety Report 7529436-7 (Version None)
Quarter: 2011Q2

REPORT INFORMATION
  Report Type: 
  Country: None (occurrence: None)
  Receive Date: 20110531
  Receipt Date: 20110517
  Transmission Date: 20111010
  Serious: Yes (Hospitalization, Other)
  Sender: FDA-Public Use
  Company Number: 2011MA006009

PATIENT
  Age: 14 Year
  Sex: Female

DRUGS (2)
  1. BUPROPION HYDROCHLORIDE (WELLBUTRIN XL) [Suspect]
     Indication: MAJOR DEPRESSION
     Dosage: 150 MG;BID
  2. RISPERIDONE [Concomitant]

REACTIONS (6)
  - DISORIENTATION [None]
  - CONVULSION [None]
  - SOMNOLENCE [None]
  - NAUSEA [None]
  - OVERDOSE [None]
  - DYSARTHRIA [None]
